FAERS Safety Report 19573574 (Version 1)
Quarter: 2021Q3

REPORT INFORMATION
  Report Type: Spontaneous
  Country: PK (occurrence: PK)
  Receive Date: 20210717
  Receipt Date: 20210717
  Transmission Date: 20211014
  Serious: Yes (Other)
  Sender: FDA-Public Use
  Company Number: PK-ACCORD-229221

PATIENT
  Age: 33 Year
  Sex: Female

DRUGS (1)
  1. TOPIRAMATE. [Suspect]
     Active Substance: TOPIRAMATE
     Indication: MIGRAINE
     Dosage: 25 MG A WEEK EARLIER

REACTIONS (6)
  - Visual acuity reduced [Recovering/Resolving]
  - Conjunctival hyperaemia [Recovering/Resolving]
  - Acute myopia [Recovered/Resolved]
  - Angle closure glaucoma [Recovered/Resolved]
  - Intraocular pressure increased [Recovering/Resolving]
  - Choroidal effusion [Recovering/Resolving]
